FAERS Safety Report 13947135 (Version 3)
Quarter: 2017Q3

REPORT INFORMATION
  Report Type: Spontaneous
  Country: BR (occurrence: BR)
  Receive Date: 20170907
  Receipt Date: 20170913
  Transmission Date: 20171128
  Serious: Yes (Death, Hospitalization, Other)
  Sender: FDA-Public Use
  Company Number: BR-B.I. PHARMACEUTICALS,INC./RIDGEFIELD-2017-BI-049179

PATIENT
  Age: 68 Year
  Sex: Female

DRUGS (1)
  1. TRAYENTA [Suspect]
     Active Substance: LINAGLIPTIN
     Indication: TYPE 2 DIABETES MELLITUS
     Route: 065

REACTIONS (6)
  - Cardiac arrest [Unknown]
  - Chronic kidney disease [Unknown]
  - Death [Fatal]
  - Herpes simplex encephalitis [Unknown]
  - Herpes ophthalmic [Unknown]
  - Rib fracture [Unknown]

NARRATIVE: CASE EVENT DATE: 20170905
